FAERS Safety Report 19643005 (Version 2)
Quarter: 2021Q4

REPORT INFORMATION
  Report Type: Spontaneous
  Country: NL (occurrence: NL)
  Receive Date: 20210731
  Receipt Date: 20211001
  Transmission Date: 20220303
  Serious: Yes (Other)
  Sender: FDA-Public Use
  Company Number: NVSC2021NL170503

PATIENT
  Age: 58 Year

DRUGS (6)
  1. PREDNISONE [Suspect]
     Active Substance: PREDNISONE
     Indication: Pemphigoid
     Dosage: UNK
     Route: 062
  2. MYCOPHENOLIC ACID [Suspect]
     Active Substance: MYCOPHENOLIC ACID
     Indication: Pemphigoid
     Dosage: UNK
     Route: 062
  3. CYCLOPHOSPHAMIDE [Suspect]
     Active Substance: CYCLOPHOSPHAMIDE
     Indication: Pemphigoid
     Dosage: UNK
     Route: 062
  4. RITUXIMAB [Suspect]
     Active Substance: RITUXIMAB
     Indication: Pemphigoid
     Dosage: UNK
     Route: 062
  5. TRIAMCINOLONE ACETONIDE [Suspect]
     Active Substance: TRIAMCINOLONE ACETONIDE
     Indication: Pemphigoid
     Dosage: UNK
     Route: 061
  6. DAPSONE [Suspect]
     Active Substance: DAPSONE
     Indication: Pemphigoid
     Dosage: UNK
     Route: 062

REACTIONS (4)
  - Pemphigoid [Unknown]
  - Condition aggravated [Unknown]
  - Drug ineffective [Unknown]
  - Product use in unapproved indication [Unknown]
